FAERS Safety Report 5341780-0 (Version None)
Quarter: 2007Q2

REPORT INFORMATION
  Report Type: 
  Country: None (occurrence: None)
  Receive Date: 20070601
  Receipt Date: 20070530
  Transmission Date: 20071010
  Serious: Yes (Death, Disabling, Other)
  Sender: FDA-Public Use
  Company Number: US-ELI_LILLY_AND_COMPANY-US200705007414

PATIENT
  Age: 74 Year
  Sex: Male

DRUGS (1)
  1. GEMZAR [Suspect]
     Indication: PANCREATIC CARCINOMA
     Route: 042

REACTIONS (6)
  - DEATH [None]
  - FLUID RETENTION [None]
  - GASTROINTESTINAL PERFORATION [None]
  - OVERDOSE [None]
  - SKIN DISORDER [None]
  - VASCULITIS [None]
